FAERS Safety Report 7518632-0 (Version None)
Quarter: 2011Q2

REPORT INFORMATION
  Report Type: 
  Country: None (occurrence: None)
  Receive Date: 20110601
  Receipt Date: 20110601
  Transmission Date: 20111010
  Serious: Yes (Death)
  Sender: FDA-Public Use
  Company Number: None

PATIENT
  Age: 60 Year
  Sex: Male
  Weight: 127.0072 kg

DRUGS (1)
  1. PRADAXA [Suspect]
     Indication: THROMBOSIS PROPHYLAXIS
     Dosage: ONE CAPSULE; TWICE A DAY

REACTIONS (7)
  - DYSPNOEA [None]
  - HEART RATE DECREASED [None]
  - CARDIO-RESPIRATORY ARREST [None]
  - NAUSEA [None]
  - RASH [None]
  - PRURITUS [None]
  - DRUG HYPERSENSITIVITY [None]
